FAERS Safety Report 4309521-3 (Version None)
Quarter: 2004Q1

REPORT INFORMATION
  Report Type: 
  Country: None (occurrence: None)
  Receive Date: 20040301
  Receipt Date: 20040220
  Transmission Date: 20041129
  Serious: Yes (Other)
  Sender: FDA-Public Use
  Company Number: 2004-01-1565

PATIENT
  Sex: Male

DRUGS (6)
  1. PEG-INTRON [Suspect]
     Indication: HEPATITIS C
     Dosage: SUBCUTANEOUS
     Route: 058
     Dates: end: 20031101
  2. PEG-INTRON [Suspect]
     Indication: HEPATITIS C
     Dosage: SUBCUTANEOUS
     Route: 058
     Dates: start: 20031226
  3. REBETOL [Suspect]
     Indication: HEPATITIS C
     Dosage: ORAL
     Route: 048
     Dates: end: 20031101
  4. REBETOL [Suspect]
     Indication: HEPATITIS C
     Dosage: ORAL
     Route: 048
     Dates: start: 20031226
  5. EPOGEN (ERYTROPOIETIN) [Concomitant]
  6. METHADONE HCL [Concomitant]

REACTIONS (10)
  - BLINDNESS TRANSIENT [None]
  - CONJUNCTIVAL HYPERAEMIA [None]
  - ERYTHEMA [None]
  - FULL BLOOD COUNT DECREASED [None]
  - MALAISE [None]
  - PANIC REACTION [None]
  - PHOTOPHOBIA [None]
  - PUNCTATE KERATITIS [None]
  - VISION BLURRED [None]
  - VISUAL ACUITY REDUCED [None]
